FAERS Safety Report 6880813-7 (Version None)
Quarter: 2010Q2

REPORT INFORMATION
  Report Type: 
  Country: None (occurrence: None)
  Receive Date: 20100630
  Receipt Date: 20090610
  Transmission Date: 20101027
  Serious: Yes (Hospitalization)
  Sender: FDA-Public Use
  Company Number: 2009226342

PATIENT
  Sex: Female
  Weight: 10.9 kg

DRUGS (2)
  1. ZITHROMAX [Suspect]
     Indication: EAR INFECTION
     Dates: start: 20071201, end: 20071201
  2. ACETAMINOPHEN [Concomitant]

REACTIONS (5)
  - ANAPHYLACTIC REACTION [None]
  - DYSPNOEA [None]
  - RASH [None]
  - URTICARIA [None]
  - VOMITING [None]
